FAERS Safety Report 19683234 (Version 1)
Quarter: 2021Q3

REPORT INFORMATION
  Report Type: Spontaneous
  Country: JP (occurrence: JP)
  Receive Date: 20210810
  Receipt Date: 20210810
  Transmission Date: 20211014
  Serious: Yes (Hospitalization, Other)
  Sender: FDA-Public Use
  Company Number: JP-FRESENIUS KABI-FK202108348

PATIENT
  Age: 51 Year
  Sex: Male

DRUGS (6)
  1. METHYLPREDNISOLONE (MANUFACTURER UNKNOWN) [Suspect]
     Active Substance: METHYLPREDNISOLONE
     Dosage: 5/18: 2 500MG 50MG X 3D
     Route: 065
  2. METHYLPREDNISOLONE (MANUFACTURER UNKNOWN) [Suspect]
     Active Substance: METHYLPREDNISOLONE
     Dosage: 4/26
     Route: 065
  3. CICLOSPORIN [Suspect]
     Active Substance: CYCLOSPORINE
     Indication: IMMUNOSUPPRESSANT DRUG THERAPY
     Dosage: 50?100MG/D
     Route: 065
  4. MIZORIBINE [Suspect]
     Active Substance: MIZORIBINE
     Indication: IMMUNOSUPPRESSANT DRUG THERAPY
     Dosage: 50?100MG/D
     Route: 065
  5. METHYLPREDNISOLONE (MANUFACTURER UNKNOWN) [Suspect]
     Active Substance: METHYLPREDNISOLONE
     Indication: KIDNEY TRANSPLANT REJECTION
     Dosage: 4/18
     Route: 065
  6. PREDNISOLONE. [Suspect]
     Active Substance: PREDNISOLONE
     Indication: IMMUNOSUPPRESSANT DRUG THERAPY
     Route: 065

REACTIONS (9)
  - Wound infection staphylococcal [Unknown]
  - Urinary tract infection pseudomonal [Unknown]
  - Necrotising fasciitis fungal [Recovered/Resolved]
  - Pseudomonas infection [Unknown]
  - Wound infection pseudomonas [Unknown]
  - Immune reconstitution inflammatory syndrome [Recovered/Resolved]
  - Cryptococcosis [Recovered/Resolved]
  - Urinary tract infection staphylococcal [Unknown]
  - Prostatic abscess [Unknown]
